FAERS Safety Report 8480014-5 (Version None)
Quarter: 2012Q2

REPORT INFORMATION
  Report Type: 
  Country: None (occurrence: None)
  Receive Date: 20120629
  Receipt Date: 20120620
  Transmission Date: 20120825
  Serious: Yes (Hospitalization, Other)
  Sender: FDA-Public Use
  Company Number: JP-ROCHE-1081314

PATIENT
  Sex: Female
  Weight: 48.95 kg

DRUGS (7)
  1. MAGLAX [Concomitant]
     Dosage: DOSAGE IS UNCERTAIN.
     Route: 048
     Dates: start: 20110719
  2. TMC435 [Concomitant]
     Indication: HEPATITIS C
     Dosage: DOSAGE IS UNCERTAIN.
     Route: 048
     Dates: start: 20110316, end: 20110419
  3. COPEGUS [Suspect]
     Route: 048
     Dates: start: 20110802, end: 20110906
  4. COPEGUS [Suspect]
     Indication: HEPATITIS C
     Route: 048
     Dates: start: 20110316, end: 20110801
  5. EDIROL [Concomitant]
     Dosage: DOSAGE IS UNCERTAIN.
     Route: 048
     Dates: start: 20120404
  6. COPEGUS [Suspect]
     Route: 048
     Dates: start: 20110907, end: 20120214
  7. PEGASYS [Suspect]
     Indication: HEPATITIS C
     Route: 058
     Dates: start: 20110316, end: 20120207

REACTIONS (1)
  - INCLUSION BODY MYOSITIS [None]
